FAERS Safety Report 25775790 (Version 1)
Quarter: 2025Q3

REPORT INFORMATION
  Report Type: Spontaneous
  Country: EU (occurrence: EU)
  Receive Date: 20250909
  Receipt Date: 20250909
  Transmission Date: 20251021
  Serious: Yes (Other)
  Sender: BAUSCH AND LOMB
  Company Number: EU-BRISTOL-MYERS SQUIBB COMPANY-2025-117159

PATIENT
  Age: 79 Year
  Sex: Male
  Weight: 61 kg

DRUGS (17)
  1. DEXAMETHASONE SODIUM PHOSPHATE [Suspect]
     Active Substance: DEXAMETHASONE SODIUM PHOSPHATE
     Indication: Plasma cell myeloma
     Route: 065
     Dates: start: 20220916
  2. THALIDOMIDE [Suspect]
     Active Substance: THALIDOMIDE
     Indication: Plasma cell myeloma
     Route: 065
     Dates: start: 20220916
  3. BORTEZOMIB [Suspect]
     Active Substance: BORTEZOMIB
     Indication: Plasma cell myeloma
     Route: 065
     Dates: start: 20220916
  4. TOLODODEKIN ALFA [Suspect]
     Active Substance: TOLODODEKIN ALFA
     Indication: Plasma cell myeloma
     Route: 065
     Dates: start: 20220916
  5. HYDROMORPHONE [Concomitant]
     Active Substance: HYDROMORPHONE
     Indication: Pain
     Dosage: AS NEEDED
  6. HYDROMORPHONE [Concomitant]
     Active Substance: HYDROMORPHONE
  7. HYDROMORPHONE [Concomitant]
     Active Substance: HYDROMORPHONE
  8. ASPIRIN [Concomitant]
     Active Substance: ASPIRIN
     Indication: Product used for unknown indication
  9. BISOPROLOL [Concomitant]
     Active Substance: BISOPROLOL
     Indication: Product used for unknown indication
  10. LERCANIDIPINE [Concomitant]
     Active Substance: LERCANIDIPINE
     Indication: Product used for unknown indication
  11. ACYCLOVIR [Concomitant]
     Active Substance: ACYCLOVIR
     Indication: Product used for unknown indication
     Dosage: 1-0-0
  12. CALCIUM LACTATE [Concomitant]
     Active Substance: CALCIUM LACTATE
     Indication: Product used for unknown indication
     Dosage: CHEWING TABLETS 500 MG/400 IE 1-0-1
  13. PLASMA PROTEIN FRACTION (HUMAN) [Concomitant]
     Active Substance: PLASMA PROTEIN FRACTION (HUMAN)
     Indication: Product used for unknown indication
     Dosage: INSTANT ML
  14. SULFAMETHOXAZOLE\TRIMETHOPRIM [Concomitant]
     Active Substance: SULFAMETHOXAZOLE\TRIMETHOPRIM
     Indication: Product used for unknown indication
     Dosage: 1-0-0 MONDAYS, WEDNESDAYS, FRIDAYS
  15. LISINOPRIL [Concomitant]
     Active Substance: LISINOPRIL
     Indication: Product used for unknown indication
  16. METAMIZOLE SODIUM [Concomitant]
     Active Substance: METAMIZOLE SODIUM
     Indication: Product used for unknown indication
  17. SODIUM BICARBONATE,POTASSIUM CHLORIDE,SODIUM CHLORIDE,MACROGOL 3350 [Concomitant]
     Indication: Product used for unknown indication
     Dosage: SACHET 1-0-0

REACTIONS (5)
  - Acute kidney injury [Unknown]
  - Pneumonia [Unknown]
  - Neurogenic bladder [Unknown]
  - Tooth disorder [Unknown]
  - Off label use [Unknown]
